FAERS Safety Report 9083836 (Version 1)
Quarter: 2013Q1

REPORT INFORMATION
  Report Type: Report from Study
  Country: PR (occurrence: PR)
  Receive Date: 20130131
  Receipt Date: 20130131
  Transmission Date: 20140127
  Serious: Yes (Hospitalization)
  Sender: FDA-Public Use
  Company Number: PR-ABBOTT-12P-131-0971823-00

PATIENT
  Sex: Female
  Weight: 90.8 kg

DRUGS (12)
  1. HUMIRA 40 MG/0.8 ML PEN [Suspect]
     Indication: PSORIATIC ARTHROPATHY
     Route: 058
     Dates: start: 201203, end: 20120814
  2. HUMIRA 40 MG/0.8 ML PEN [Suspect]
     Indication: PSORIASIS
  3. HUMIRA 40 MG/0.8 ML PEN [Suspect]
     Indication: RHEUMATOID ARTHRITIS
  4. CREAMS [Concomitant]
     Indication: PRODUCT USED FOR UNKNOWN INDICATION
     Dosage: 1 APPLICATION BID
     Route: 061
  5. ANTIBIOTICS [Concomitant]
     Indication: PSORIASIS
     Dosage: EXPOSURE
     Dates: start: 201111
  6. PLAQUENIL [Concomitant]
     Indication: PSORIASIS
     Route: 048
  7. FOLIC ACID [Concomitant]
     Indication: PRODUCT USED FOR UNKNOWN INDICATION
     Dosage: 1 TABLET DAILY
     Route: 048
  8. METHOTREXATE [Concomitant]
     Indication: PRODUCT USED FOR UNKNOWN INDICATION
     Dosage: 3 TABLETS EVERY THURSDAY
     Route: 048
  9. HUMALOG 50/50 INSULIN [Concomitant]
     Indication: DIABETES MELLITUS
     Dosage: 50 UNITS IN AM AND PM
     Route: 058
  10. GLYBURIDE-METFORMIN [Concomitant]
     Indication: DIABETES MELLITUS
     Route: 048
  11. LOSARTAN [Concomitant]
     Dosage: 1 TABLET (50MG/12.5MG) DAILY
     Route: 048
  12. SYNTHROID [Concomitant]
     Indication: THYROID DISORDER
     Dosage: 0.88 DAILY
     Route: 048

REACTIONS (2)
  - Urinary tract infection [Recovered/Resolved]
  - Sepsis [Recovered/Resolved]
